FAERS Safety Report 21995965 (Version 1)
Quarter: 2023Q1

REPORT INFORMATION
  Report Type: Report from Study
  Country: FR (occurrence: FR)
  Receive Date: 20230215
  Receipt Date: 20230215
  Transmission Date: 20230418
  Serious: Yes (Other)
  Sender: FDA-Public Use
  Company Number: FR-TAKEDA-2023TUS009684

PATIENT
  Sex: Male
  Weight: 68 kg

DRUGS (11)
  1. MARIBAVIR [Suspect]
     Active Substance: MARIBAVIR
     Indication: Cytomegalovirus infection
     Dosage: 400 MILLIGRAM, BID
     Route: 048
     Dates: start: 20230113, end: 20230124
  2. MARIBAVIR [Suspect]
     Active Substance: MARIBAVIR
     Dosage: 400 MILLIGRAM, BID
     Route: 048
     Dates: start: 20230114, end: 20230123
  3. VALGANCICLOVIR [Suspect]
     Active Substance: VALGANCICLOVIR
     Indication: Product used for unknown indication
     Dosage: 900 MILLIGRAM, BID
     Route: 048
     Dates: start: 20230125
  4. POSACONAZOLE [Concomitant]
     Active Substance: POSACONAZOLE
  5. MEROPENEM [Concomitant]
     Active Substance: MEROPENEM
  6. FILGRASTIM [Concomitant]
     Active Substance: FILGRASTIM
  7. NPLATE [Concomitant]
     Active Substance: ROMIPLOSTIM
  8. ARANESP [Concomitant]
     Active Substance: DARBEPOETIN ALFA
  9. ACETAMINOPHEN [Concomitant]
     Active Substance: ACETAMINOPHEN
  10. RACECADOTRIL [Concomitant]
     Active Substance: RACECADOTRIL
  11. SMECTA [Concomitant]
     Active Substance: MONTMORILLONITE

REACTIONS (3)
  - Neutropenia [Unknown]
  - Diarrhoea [Unknown]
  - Product prescribing issue [Unknown]
